FAERS Safety Report 7717985-8 (Version None)
Quarter: 2011Q3

REPORT INFORMATION
  Report Type: 
  Country: None (occurrence: None)
  Receive Date: 20110830
  Receipt Date: 20110630
  Transmission Date: 20111222
  Serious: No
  Sender: FDA-Public Use
  Company Number: US-AMGEN-USASP2011033713

PATIENT
  Age: 73 Year
  Sex: Female
  Weight: 66.213 kg

DRUGS (6)
  1. NPLATE [Suspect]
     Indication: IDIOPATHIC THROMBOCYTOPENIC PURPURA
     Dosage: 65 A?G, UNK
     Dates: start: 20101208, end: 20101208
  2. CENTRUM SILVER                     /01292501/ [Concomitant]
     Route: 048
  3. CRESTOR [Concomitant]
     Dosage: 40 MG, QD
  4. CORTICOSTEROIDS [Concomitant]
  5. RITUXIMAB [Concomitant]
     Dosage: 375 MG/M2, UNK
     Dates: start: 20101210
  6. PREDNISONE [Concomitant]
     Dosage: 15 MG, QD
     Dates: end: 20110101

REACTIONS (3)
  - PAIN IN EXTREMITY [None]
  - PETECHIAE [None]
  - COUGH [None]
